FAERS Safety Report 9122805 (Version 1)
Quarter: 2013Q1

REPORT INFORMATION
  Report Type: Spontaneous
  Country: US (occurrence: US)
  Receive Date: 20130227
  Receipt Date: 20130227
  Transmission Date: 20140127
  Serious: Yes (Other)
  Sender: FDA-Public Use
  Company Number: US-GENZYME-CLOF-1002526

PATIENT
  Age: 50 Year
  Sex: Male

DRUGS (10)
  1. CLOLAR [Suspect]
     Indication: ACUTE LEUKAEMIA
     Dosage: 15 MG/M2 (INDUCTION THERAPY)
     Route: 065
  2. CLOLAR [Suspect]
     Indication: IMMUNOSUPPRESSANT DRUG THERAPY
     Dosage: 2 CYCLES OF CONSOLIDATION THERAPY AT 4-WEEKLY INTERVAL PER PROTOCOL
     Route: 065
  3. CYTARABINE [Suspect]
     Indication: ACUTE LEUKAEMIA
     Dosage: 0.75 G/M2 (INDUCTION THERAPY)
     Route: 065
  4. CYTARABINE [Suspect]
     Indication: IMMUNOSUPPRESSANT DRUG THERAPY
     Dosage: 2 CYCLES OF CONSOLIDATION THERAPY AT 4-WEEKLY INTERVAL PER PROTOCOL
     Route: 065
  5. IDARUBICIN [Suspect]
     Indication: ACUTE LEUKAEMIA
     Dosage: 8 MG/M2 (INDUCTION THERAPY)
     Route: 065
  6. IDARUBICIN [Suspect]
     Indication: IMMUNOSUPPRESSANT DRUG THERAPY
     Dosage: 2 CYCLES OF CONSOLIDATION THERAPY AT 4-WEEKLY INTERVAL PER PROTOCOL
     Route: 065
  7. METHYLPREDNISOLONE [Suspect]
     Indication: ACUTE LEUKAEMIA
     Dosage: 40 MG (INDUCTION THERAPY)
     Route: 042
  8. METHYLPREDNISOLONE [Suspect]
     Indication: IMMUNOSUPPRESSANT DRUG THERAPY
  9. SOLU MEDROL [Suspect]
     Indication: PRODUCT USED FOR UNKNOWN INDICATION
     Dosage: 40 MG, QD
     Route: 065
  10. VALACICLOVIR [Concomitant]
     Indication: PROPHYLAXIS
     Dosage: UNK
     Route: 065

REACTIONS (1)
  - Post transplant lymphoproliferative disorder [Unknown]
